FAERS Safety Report 11140963 (Version 2)
Quarter: 2020Q3

REPORT INFORMATION
  Report Type: Spontaneous
  Country: IT (occurrence: IT)
  Receive Date: 20150527
  Receipt Date: 20180919
  Transmission Date: 20201104
  Serious: Yes (Other)
  Sender: FDA-Public Use
  Company Number: IT-JNJFOC-20150517908

PATIENT
  Age: 86 Year
  Sex: Female

DRUGS (15)
  1. TRAMADOL HYDROCHLORIDE. [Suspect]
     Active Substance: TRAMADOL HYDROCHLORIDE
     Indication: SPINAL PAIN
     Route: 065
  2. OXYCODONE [Suspect]
     Active Substance: OXYCODONE
     Indication: BACK PAIN
     Route: 065
  3. ETORICOXIB. [Suspect]
     Active Substance: ETORICOXIB
     Indication: SPINAL PAIN
     Route: 065
  4. OXYCODONE [Suspect]
     Active Substance: OXYCODONE
     Indication: SPINAL PAIN
     Route: 065
  5. KETOROLAC [Suspect]
     Active Substance: KETOROLAC TROMETHAMINE
     Indication: SPINAL PAIN
     Route: 065
  6. HYDROMORPHONE [Concomitant]
     Active Substance: HYDROMORPHONE
     Indication: SPINAL PAIN
     Route: 065
  7. TRAMADOL HYDROCHLORIDE. [Suspect]
     Active Substance: TRAMADOL HYDROCHLORIDE
     Indication: BACK PAIN
     Route: 065
  8. NIMESULIDE [Suspect]
     Active Substance: NIMESULIDE
     Indication: BACK PAIN
     Route: 065
  9. NIMESULIDE [Suspect]
     Active Substance: NIMESULIDE
     Indication: SPINAL PAIN
     Route: 065
  10. KETOROLAC [Suspect]
     Active Substance: KETOROLAC TROMETHAMINE
     Indication: BACK PAIN
     Route: 065
  11. ETORICOXIB. [Suspect]
     Active Substance: ETORICOXIB
     Indication: BACK PAIN
     Route: 065
  12. DICLOFENAC [Suspect]
     Active Substance: DICLOFENAC
     Indication: BACK PAIN
     Route: 065
  13. DICLOFENAC [Suspect]
     Active Substance: DICLOFENAC
     Indication: SPINAL PAIN
     Route: 065
  14. PREGABALIN. [Concomitant]
     Active Substance: PREGABALIN
     Indication: SPINAL PAIN
     Route: 065
  15. DULOXETINE. [Concomitant]
     Active Substance: DULOXETINE
     Indication: SPINAL PAIN
     Route: 065

REACTIONS (3)
  - Drug abuse [Recovered/Resolved]
  - Disorientation [Recovered/Resolved]
  - Dysarthria [Recovered/Resolved]
